FAERS Safety Report 8765909 (Version 1)
Quarter: 2012Q4

REPORT INFORMATION
  Report Type: 
  Country: US (occurrence: US)
  Receive Date: 20120904
  Receipt Date: 20120904
  Transmission Date: 20130627
  Serious: No
  Sender: FDA-Public Use
  Company Number: US-009507513-1208USA009993

PATIENT

DRUGS (4)
  1. PEGINTRON [Suspect]
     Indication: HEPATITIS C
     Dosage: UNK
  2. PEGASYS [Concomitant]
     Indication: HEPATITIS C
     Dosage: UNK
     Dates: start: 20120811
  3. RIBASPHERE [Concomitant]
     Dosage: UNK
     Dates: start: 20120811
  4. TELAPREVIR [Concomitant]

REACTIONS (1)
  - Injection site erythema [Unknown]
